FAERS Safety Report 20571466 (Version 1)
Quarter: 2022Q1

REPORT INFORMATION
  Report Type: Spontaneous
  Country: US (occurrence: None)
  Receive Date: 20220308
  Receipt Date: 20220308
  Transmission Date: 20220423
  Serious: Yes (Hospitalization)
  Sender: FDA-Public Use
  Company Number: None

PATIENT
  Age: 57 Year
  Sex: Male

DRUGS (1)
  1. CAPECITABINE [Suspect]
     Active Substance: CAPECITABINE
     Indication: Neuroendocrine tumour
     Dosage: FREQUENCY : TWICE A DAY;?
     Route: 048
     Dates: start: 202112, end: 202202

REACTIONS (4)
  - Palmar-plantar erythrodysaesthesia syndrome [None]
  - Seizure [None]
  - Blood glucose increased [None]
  - Central nervous system lesion [None]

NARRATIVE: CASE EVENT DATE: 20220215
